FAERS Safety Report 8920696 (Version 2)
Quarter: 2012Q4

REPORT INFORMATION
  Report Type: Report from Study
  Country: SE (occurrence: SE)
  Receive Date: 20121121
  Receipt Date: 20121207
  Transmission Date: 20130627
  Serious: Yes (Hospitalization)
  Sender: FDA-Public Use
  Company Number: SE-009507513-1211SWE007371

PATIENT
  Age: 70 Year
  Sex: Male
  Weight: 72.2 kg

DRUGS (12)
  1. BLINDED EZETIMIBE (+) SIMVASTATIN [Suspect]
     Indication: ACUTE CORONARY SYNDROME
     Dosage: UNK
     Route: 048
     Dates: start: 20070319
  2. BLINDED PLACEBO [Suspect]
     Indication: ACUTE CORONARY SYNDROME
     Dosage: UNK
     Route: 048
     Dates: start: 20070319
  3. BLINDED POST TRIAL THERAPY [Suspect]
     Indication: ACUTE CORONARY SYNDROME
     Dosage: UNK
     Route: 048
     Dates: start: 20070319
  4. BLINDED PRE TRIAL THERAPY [Suspect]
     Indication: ACUTE CORONARY SYNDROME
     Dosage: UNK
     Route: 048
     Dates: start: 20070319
  5. BLINDED SIMVASTATIN [Suspect]
     Indication: ACUTE CORONARY SYNDROME
     Dosage: UNK
     Route: 048
     Dates: start: 20070319
  6. BLINDED THERAPY [Suspect]
     Indication: ACUTE CORONARY SYNDROME
     Dosage: UNK
     Route: 048
     Dates: start: 20070319
  7. TROMBYL [Concomitant]
     Dosage: 75 mg, total daily dose
     Route: 048
     Dates: start: 20100302
  8. METOTREXATO ASOFARMA [Concomitant]
     Dosage: 15 mg, qw
     Route: 048
     Dates: start: 20100927
  9. SERTRALINE HYDROCHLORIDE [Concomitant]
     Dosage: 50 mg, total daily dose
     Route: 048
     Dates: start: 20111221
  10. OMEPRAZOLE [Concomitant]
     Dosage: 20mg, total daily dose
     Route: 048
     Dates: start: 20120514
  11. AMIAS [Concomitant]
     Dosage: 32 mg, total daily dose
     Route: 048
     Dates: start: 20110112
  12. FOLACIN [Concomitant]
     Dosage: 5 mg, biw
     Route: 048
     Dates: start: 20100927

REACTIONS (1)
  - Arthritis reactive [Unknown]
